FAERS Safety Report 7340068-6 (Version None)
Quarter: 2011Q1

REPORT INFORMATION
  Report Type: 
  Country: None (occurrence: None)
  Receive Date: 20110309
  Receipt Date: 20110302
  Transmission Date: 20110831
  Serious: Yes (Disabling)
  Sender: FDA-Public Use
  Company Number: PHHO2011KR04138

PATIENT
  Sex: Male
  Weight: 56.6 kg

DRUGS (4)
  1. CALCIUM [Concomitant]
     Indication: OSTEONECROSIS
  2. ALVESCO [Concomitant]
     Indication: ASTHMA
  3. ACLASTA/ZOLEDRONATE [Suspect]
     Indication: OSTEONECROSIS
     Dosage: 5 MG, ONCE YEARLY
     Route: 048
     Dates: start: 20100201
  4. VITAMIN D [Concomitant]
     Indication: OSTEONECROSIS

REACTIONS (3)
  - OSTEONECROSIS [None]
  - SURGERY [None]
  - DISEASE PROGRESSION [None]
